FAERS Safety Report 15296367 (Version 8)
Quarter: 2019Q1

REPORT INFORMATION
  Report Type: Spontaneous
  Country: IE (occurrence: IE)
  Receive Date: 20180820
  Receipt Date: 20190319
  Transmission Date: 20190417
  Serious: Yes (Death, Hospitalization)
  Sender: FDA-Public Use
  Company Number: IE-BIOGEN-2018BI00622281

PATIENT
  Age: 46 Year
  Sex: Female

DRUGS (1)
  1. TYSABRI [Suspect]
     Active Substance: NATALIZUMAB
     Indication: MULTIPLE SCLEROSIS
     Route: 050
     Dates: start: 20090319, end: 20180809

REACTIONS (2)
  - Progressive multifocal leukoencephalopathy [Fatal]
  - Multiple sclerosis [Unknown]

NARRATIVE: CASE EVENT DATE: 2017
